FAERS Safety Report 20819010 (Version 1)
Quarter: 2022Q2

REPORT INFORMATION
  Report Type: Spontaneous
  Country: GB (occurrence: GB)
  Receive Date: 20220512
  Receipt Date: 20220512
  Transmission Date: 20220721
  Serious: Yes (Other)
  Sender: FDA-Public Use
  Company Number: GB-GLENMARK PHARMACEUTICALS-2022GMK071968

PATIENT
  Age: 38 Year
  Sex: Female

DRUGS (1)
  1. CAPECITABINE [Suspect]
     Active Substance: CAPECITABINE
     Indication: Triple negative breast cancer
     Dosage: UNK,DURATION 5MONTHS
     Route: 065
     Dates: start: 202004, end: 202009

REACTIONS (3)
  - Disease progression [Not Recovered/Not Resolved]
  - Drug ineffective [Unknown]
  - Triple negative breast cancer [Not Recovered/Not Resolved]

NARRATIVE: CASE EVENT DATE: 20200101
